FAERS Safety Report 17862826 (Version 1)
Quarter: 2020Q2

REPORT INFORMATION
  Report Type: Spontaneous
  Country: US (occurrence: US)
  Receive Date: 20200604
  Receipt Date: 20200604
  Transmission Date: 20200714
  Serious: No
  Sender: FDA-Public Use
  Company Number: US-FOUNDATIONCONSUMERHC-2020-US-006465

PATIENT
  Age: 19 Year
  Sex: Female
  Weight: 90.72 kg

DRUGS (1)
  1. PLAN B ONE-STEP [Suspect]
     Active Substance: LEVONORGESTREL
     Indication: POST COITAL CONTRACEPTION
     Dosage: 1.5MG X 5
     Route: 048
     Dates: start: 20200317, end: 20200319

REACTIONS (4)
  - Nausea [Not Recovered/Not Resolved]
  - Incorrect dosage administered [Recovered/Resolved]
  - Intentional product misuse [Recovered/Resolved]
  - Headache [Not Recovered/Not Resolved]

NARRATIVE: CASE EVENT DATE: 202003
